FAERS Safety Report 16992764 (Version 1)
Quarter: 2019Q4

REPORT INFORMATION
  Report Type: Spontaneous
  Country: US (occurrence: US)
  Receive Date: 20190923
  Receipt Date: 20190923
  Transmission Date: 20200122
  Serious: No
  Sender: FDA-Public Use
  Company Number: None

PATIENT
  Sex: Male

DRUGS (2)
  1. LAMIVUDINE 150MG [Suspect]
     Active Substance: LAMIVUDINE
     Indication: HIV INFECTION
     Route: 048
     Dates: start: 20030711
  2. EFAVIRENZ 600MG [Suspect]
     Active Substance: EFAVIRENZ
     Route: 048
     Dates: start: 20030711

REACTIONS (1)
  - Coordination abnormal [None]
